FAERS Safety Report 10169482 (Version 1)
Quarter: 2014Q2

REPORT INFORMATION
  Report Type: Spontaneous
  Country: US (occurrence: US)
  Receive Date: 20140513
  Receipt Date: 20140513
  Transmission Date: 20141212
  Serious: No
  Sender: FDA-Public Use
  Company Number: US-B.I. PHARMACEUTICALS,INC./RIDGEFIELD-2014-BI-19996BP

PATIENT
  Age: 64 Year
  Sex: Female
  Weight: 67 kg

DRUGS (11)
  1. ZANTAC 150 (RANITIDINE HYDROCHLORIDE) [Suspect]
     Indication: DYSPEPSIA
     Dosage: 150 MG
     Route: 048
     Dates: start: 20140503
  2. ZANTAC 150 (RANITIDINE HYDROCHLORIDE) [Suspect]
     Indication: DYSPEPSIA
  3. ZYPREXA [Concomitant]
     Indication: PANIC ATTACK
     Dosage: 2.5 MG
     Route: 048
  4. NORVASC [Concomitant]
     Indication: HYPERTENSION
     Dosage: 10 MG
     Route: 048
  5. LISINOPRIL [Concomitant]
     Indication: HYPERTENSION
     Dosage: 10 MG
     Route: 048
  6. XANAX [Concomitant]
     Indication: PANIC ATTACK
     Dosage: 1 MG
     Route: 048
  7. VYTORIN [Concomitant]
     Indication: HYPERTENSION
     Dosage: STRENGTH: 10/20 MG; DAILY DOSE: 10/20 MG
     Route: 048
  8. PROTONIX [Concomitant]
     Indication: GASTROOESOPHAGEAL REFLUX DISEASE
     Dosage: 40 MG
     Route: 048
  9. PRISTIQ [Concomitant]
     Indication: PANIC ATTACK
     Dosage: 25 MG
     Route: 048
  10. MOBIC [Concomitant]
     Indication: ARTHRITIS
     Dosage: 25 MG
     Route: 048
  11. ASPIRIN [Concomitant]
     Dosage: 81 MG
     Route: 048

REACTIONS (1)
  - Extrasystoles [Recovered/Resolved]
